FAERS Safety Report 8532477-4 (Version None)
Quarter: 2012Q3

REPORT INFORMATION
  Report Type: 
  Country: None (occurrence: None)
  Receive Date: 20120724
  Receipt Date: 20120716
  Transmission Date: 20120928
  Serious: Yes (Life-Threatening)
  Sender: FDA-Public Use
  Company Number: IT-MSD-2012SP035260

PATIENT
  Age: 35 Year
  Sex: Male

DRUGS (6)
  1. FENTANYL CITRATE [Suspect]
     Indication: ANAESTHESIA
     Dosage: 0.1 MG, UNKNOWN
     Route: 042
     Dates: start: 20120526, end: 20120526
  2. ACETAMINOPHEN [Concomitant]
     Indication: PAIN
     Dosage: UNK UNK, UNKNOWN
     Route: 042
  3. CIPROFLOXACIN [Concomitant]
     Indication: APPENDICITIS
     Dosage: UNK UNK, UNKNOWN
     Route: 042
  4. METRONIDAZOLE [Concomitant]
     Indication: APPENDICITIS
     Dosage: UNK UNK, UNKNOWN
     Route: 042
  5. PROPOFOL [Suspect]
     Indication: ANAESTHESIA
     Dosage: 140 MG, UNKNOWN
     Route: 042
     Dates: start: 20120526, end: 20120526
  6. ROCURONIUM BROMIDE [Suspect]
     Indication: ANAESTHESIA
     Dosage: 42 MG, UNKNOWN
     Route: 042
     Dates: start: 20120526, end: 20120526

REACTIONS (1)
  - LARYNGEAL OEDEMA [None]
